FAERS Safety Report 14821344 (Version 2)
Quarter: 2018Q2

REPORT INFORMATION
  Report Type: Report from Study
  Country: US (occurrence: US)
  Receive Date: 20180427
  Receipt Date: 20180516
  Transmission Date: 20180711
  Serious: Yes (Other)
  Sender: FDA-Public Use
  Company Number: US-BAYER-2017-231351

PATIENT
  Age: 71 Year
  Sex: Female

DRUGS (15)
  1. IBUPROFEN. [Concomitant]
     Active Substance: IBUPROFEN
  2. IRON [Concomitant]
     Active Substance: IRON
     Dosage: TABLET
  3. OXYBUTYNIN. [Concomitant]
     Active Substance: OXYBUTYNIN CHLORIDE
  4. MULTIVITAMIN [Concomitant]
     Active Substance: VITAMINS
  5. OMEPRAZOLE. [Concomitant]
     Active Substance: OMEPRAZOLE
  6. FOLIC ACID. [Concomitant]
     Active Substance: FOLIC ACID
  7. CHLORINE [Concomitant]
     Active Substance: CHLORINE
  8. PEPCID [FAMOTIDINE] [Concomitant]
  9. SENNOSIDE [Concomitant]
     Active Substance: SENNOSIDES
  10. NEXAVAR [Suspect]
     Active Substance: SORAFENIB
     Indication: HEPATOCELLULAR CARCINOMA
     Dosage: 400 MG, BID
     Route: 048
     Dates: start: 20171128, end: 20180413
  11. ASPIRIN. [Concomitant]
     Active Substance: ASPIRIN
  12. LOPERAMIDE [Concomitant]
     Active Substance: LOPERAMIDE
     Dosage: 2 MG
  13. NEXAVAR [Suspect]
     Active Substance: SORAFENIB
     Indication: HEPATOCELLULAR CARCINOMA
     Dosage: 400 MG, BID
     Route: 048
     Dates: start: 20171125, end: 20171127
  14. MECLIZINE [Concomitant]
     Active Substance: MECLIZINE HYDROCHLORIDE
  15. XIFAXAN [Concomitant]
     Active Substance: RIFAXIMIN

REACTIONS (37)
  - Glossodynia [Not Recovered/Not Resolved]
  - Fatigue [Not Recovered/Not Resolved]
  - Oral pain [None]
  - Mouth haemorrhage [None]
  - Adverse drug reaction [Not Recovered/Not Resolved]
  - Tinnitus [Not Recovered/Not Resolved]
  - Musculoskeletal pain [Not Recovered/Not Resolved]
  - Muscle spasms [Recovered/Resolved]
  - Blood count abnormal [Not Recovered/Not Resolved]
  - Tremor [Not Recovered/Not Resolved]
  - Glossodynia [None]
  - Gingival bleeding [Not Recovered/Not Resolved]
  - Musculoskeletal disorder [Not Recovered/Not Resolved]
  - Diarrhoea [Recovering/Resolving]
  - Dental restoration failure [Recovered/Resolved]
  - Skin exfoliation [Not Recovered/Not Resolved]
  - Epistaxis [None]
  - Psychomotor hyperactivity [Not Recovered/Not Resolved]
  - Skin disorder [None]
  - Feeling abnormal [None]
  - Chills [Not Recovered/Not Resolved]
  - Nasal discomfort [None]
  - Rhinorrhoea [Not Recovered/Not Resolved]
  - Muscle spasms [Not Recovered/Not Resolved]
  - Alopecia [None]
  - Weight decreased [Not Recovered/Not Resolved]
  - Blood pressure increased [Recovering/Resolving]
  - Weight decreased [None]
  - Abdominal pain upper [Not Recovered/Not Resolved]
  - Arthralgia [None]
  - Stomatitis [Not Recovered/Not Resolved]
  - Neck pain [Not Recovered/Not Resolved]
  - Feeling abnormal [Not Recovered/Not Resolved]
  - Muscle spasms [Recovering/Resolving]
  - Nasopharyngitis [Not Recovered/Not Resolved]
  - Epistaxis [Not Recovered/Not Resolved]
  - Hypertension [Recovering/Resolving]

NARRATIVE: CASE EVENT DATE: 20171126
